FAERS Safety Report 15615927 (Version 2)
Quarter: 2019Q1

REPORT INFORMATION
  Report Type: Spontaneous
  Country: CA (occurrence: CA)
  Receive Date: 20181114
  Receipt Date: 20190103
  Transmission Date: 20190417
  Serious: Yes (Hospitalization, Other)
  Sender: FDA-Public Use
  Company Number: CA-ABBVIE-18S-028-2555819-00

PATIENT
  Weight: 105 kg

DRUGS (4)
  1. DUODOPA [Suspect]
     Active Substance: CARBIDOPA\LEVODOPA
     Indication: PARKINSON^S DISEASE
     Dosage: 3.1 ML/H
     Route: 050
     Dates: start: 20160912, end: 20181107
  2. DUODOPA [Suspect]
     Active Substance: CARBIDOPA\LEVODOPA
     Dosage: 3.6 ML/H
     Route: 050
     Dates: start: 20181107
  3. COMTAN [Concomitant]
     Active Substance: ENTACAPONE
     Indication: PRODUCT USED FOR UNKNOWN INDICATION
     Route: 048
     Dates: start: 201811
  4. SINEMET [Concomitant]
     Active Substance: CARBIDOPA\LEVODOPA
     Indication: PRODUCT USED FOR UNKNOWN INDICATION
     Dosage: 100/25 MG
     Route: 048

REACTIONS (9)
  - Stoma site erythema [Recovering/Resolving]
  - Restless legs syndrome [Unknown]
  - Dystonia [Unknown]
  - Musculoskeletal stiffness [Recovering/Resolving]
  - Hallucination [Recovering/Resolving]
  - On and off phenomenon [Unknown]
  - Muscle rigidity [Unknown]
  - Bradykinesia [Unknown]
  - Stoma site discharge [Recovering/Resolving]

NARRATIVE: CASE EVENT DATE: 201810
